FAERS Safety Report 10172118 (Version 1)
Quarter: 2014Q2

REPORT INFORMATION
  Report Type: Spontaneous
  Country: CA (occurrence: CA)
  Receive Date: 20140515
  Receipt Date: 20140515
  Transmission Date: 20141212
  Serious: Yes (Other)
  Sender: FDA-Public Use
  Company Number: CA-MERCK-1405CAN005270

PATIENT
  Age: 70 Year
  Sex: Male

DRUGS (6)
  1. SINEMET [Suspect]
     Dosage: 9.0 DOSAGE FORMS, 1 EVERY 1 DAY
     Route: 048
  2. UBIDECARENONE [Concomitant]
  3. COVERSYL (PERINDOPRIL ARGININE) [Concomitant]
  4. ASCORBIC ACID [Concomitant]
  5. VITAMIN D (UNSPECIFIED) [Concomitant]
  6. VITAMIN E [Concomitant]

REACTIONS (5)
  - Haematochezia [Recovered/Resolved]
  - Pallor [Recovered/Resolved]
  - Abdominal pain [Recovered/Resolved]
  - Hallucination, visual [Recovered/Resolved]
  - Hyperhidrosis [Recovered/Resolved]
